FAERS Safety Report 24948957 (Version 2)
Quarter: 2025Q1

REPORT INFORMATION
  Report Type: Spontaneous
  Country: PL (occurrence: PL)
  Receive Date: 20250210
  Receipt Date: 20250224
  Transmission Date: 20250408
  Serious: Yes (Other)
  Sender: BAUSCH AND LOMB
  Company Number: PL-Orion Corporation ORION PHARMA-SERT2025-0002

PATIENT
  Sex: Female

DRUGS (7)
  1. LORAZEPAM [Suspect]
     Active Substance: LORAZEPAM
     Indication: Bipolar disorder
     Route: 065
     Dates: start: 2022
  2. LURASIDONE [Suspect]
     Active Substance: LURASIDONE
     Indication: Bipolar disorder
     Route: 065
     Dates: start: 2022
  3. PREGABALIN [Suspect]
     Active Substance: PREGABALIN
     Indication: Bipolar disorder
     Route: 065
     Dates: start: 2022
  4. SERTRALINE [Concomitant]
     Active Substance: SERTRALINE HYDROCHLORIDE
     Indication: Product used for unknown indication
     Dates: start: 2021
  5. OLANZAPINE [Concomitant]
     Active Substance: OLANZAPINE
     Indication: Hyponatraemia
     Dates: start: 2021
  6. CARIPRAZINE [Concomitant]
     Active Substance: CARIPRAZINE
     Indication: Aggression
     Dates: start: 202208
  7. MIANSERIN [Concomitant]
     Active Substance: MIANSERIN
     Indication: Hyponatraemia
     Dates: start: 2021

REACTIONS (1)
  - Treatment failure [Unknown]
